FAERS Safety Report 9420187 (Version 1)
Quarter: 2013Q3

REPORT INFORMATION
  Report Type: Spontaneous
  Country: CA (occurrence: None)
  Receive Date: 20130723
  Receipt Date: 20130723
  Transmission Date: 20140515
  Serious: Yes (Hospitalization)
  Sender: FDA-Public Use
  Company Number: None

PATIENT
  Age: 61 Year
  Sex: Male
  Weight: 111.4 kg

DRUGS (5)
  1. CISPLATIN [Suspect]
  2. ASPIRIN [Concomitant]
  3. BISOPROLOL [Concomitant]
  4. ESOMEPRAZOLE [Concomitant]
  5. LIPITOR [Concomitant]

REACTIONS (2)
  - Dehydration [None]
  - Dysphagia [None]
